FAERS Safety Report 4884647-4 (Version None)
Quarter: 2006Q1

REPORT INFORMATION
  Report Type: 
  Country: None (occurrence: None)
  Receive Date: 20060117
  Receipt Date: 20060105
  Transmission Date: 20060701
  Serious: Yes (Other)
  Sender: FDA-Public Use
  Company Number: 2006PV006600

PATIENT
  Age: 72 Year
  Sex: Male

DRUGS (6)
  1. BYETTA [Suspect]
     Indication: DIABETES MELLITUS NON-INSULIN-DEPENDENT
     Dosage: 10 + 5 MCG; BID; SC
     Route: 058
     Dates: start: 20050905, end: 20051005
  2. BYETTA [Suspect]
     Indication: DIABETES MELLITUS NON-INSULIN-DEPENDENT
     Dosage: 10 + 5 MCG; BID; SC
     Route: 058
     Dates: start: 20051005
  3. PLAVIX [Concomitant]
  4. ASPIRIN [Concomitant]
  5. ACTOS [Concomitant]
  6. GLYBURIDE [Concomitant]

REACTIONS (9)
  - DEFAECATION URGENCY [None]
  - DIVERTICULITIS [None]
  - DIZZINESS [None]
  - GASTRIC POLYPS [None]
  - GASTRIC ULCER [None]
  - HAEMATOCHEZIA [None]
  - NAUSEA [None]
  - PROSTATITIS [None]
  - WEIGHT DECREASED [None]
